FAERS Safety Report 8542351-5 (Version None)
Quarter: 2012Q3

REPORT INFORMATION
  Report Type: 
  Country: None (occurrence: None)
  Receive Date: 20120726
  Receipt Date: 20120502
  Transmission Date: 20120928
  Serious: Yes (Other)
  Sender: FDA-Public Use
  Company Number: US-ASTRAZENECA-2011SE50954

PATIENT
  Age: 28 Year
  Sex: Female

DRUGS (4)
  1. SEROQUEL [Suspect]
     Indication: BIPOLAR I DISORDER
     Route: 048
     Dates: start: 20010101
  2. SEROQUEL [Suspect]
     Route: 048
  3. SEROQUEL [Suspect]
     Indication: BIPOLAR DISORDER
     Route: 048
     Dates: start: 20010101
  4. SEROQUEL [Suspect]
     Route: 048

REACTIONS (11)
  - FEELING ABNORMAL [None]
  - VOMITING [None]
  - DRUG WITHDRAWAL SYNDROME [None]
  - THERMAL BURN [None]
  - ANXIETY [None]
  - CONVULSION [None]
  - BLOOD PRESSURE FLUCTUATION [None]
  - POST-TRAUMATIC STRESS DISORDER [None]
  - INTENTIONAL DRUG MISUSE [None]
  - BLOOD GLUCOSE DECREASED [None]
  - MALAISE [None]
